FAERS Safety Report 8370497-3 (Version None)
Quarter: 2012Q2

REPORT INFORMATION
  Report Type: 
  Country: None (occurrence: None)
  Receive Date: 20120518
  Receipt Date: 20120509
  Transmission Date: 20120825
  Serious: Yes (Hospitalization, Disabling)
  Sender: FDA-Public Use
  Company Number: FR-ALLERGAN-1206676US

PATIENT
  Age: 46 Year
  Sex: Male

DRUGS (5)
  1. PREDNISONE TAB [Suspect]
     Indication: MACULAR OEDEMA
  2. OZURDEX [Suspect]
     Indication: MACULAR OEDEMA
     Dosage: 0.7 MG, SINGLE
     Route: 047
     Dates: start: 20120203, end: 20120203
  3. CELLCEPT [Suspect]
     Indication: MACULAR OEDEMA
  4. CELLCEPT [Suspect]
     Indication: PAPILLOEDEMA
     Dosage: 1 G, BID
     Route: 048
     Dates: start: 20111101
  5. PREDNISONE TAB [Suspect]
     Indication: PAPILLOEDEMA
     Dosage: 30 MG, QD
     Route: 048
     Dates: start: 20111101

REACTIONS (2)
  - RETINAL ISCHAEMIA [None]
  - EYE INFECTION TOXOPLASMAL [None]
